FAERS Safety Report 14081725 (Version 1)
Quarter: 2017Q4

REPORT INFORMATION
  Report Type: Spontaneous
  Country: GB (occurrence: GB)
  Receive Date: 20171013
  Receipt Date: 20171013
  Transmission Date: 20180321
  Serious: Yes (Other)
  Sender: FDA-Public Use
  Company Number: GB-B. BRAUN MEDICAL INC.-2029937

PATIENT
  Age: 48 Year
  Sex: Female

DRUGS (10)
  1. METRONIDAZOLE. [Suspect]
     Active Substance: METRONIDAZOLE
     Dates: start: 20161017, end: 20161019
  2. LIDOCAINE. [Concomitant]
     Active Substance: LIDOCAINE
  3. SALBUTAMOL [Concomitant]
     Active Substance: ALBUTEROL
     Route: 055
  4. PLAQUENIL [Concomitant]
     Active Substance: HYDROXYCHLOROQUINE SULFATE
  5. SERETIDE [Concomitant]
     Active Substance: FLUTICASONE PROPIONATE\SALMETEROL XINAFOATE
     Route: 055
  6. LYRICA [Concomitant]
     Active Substance: PREGABALIN
  7. MONTELUKAST [Concomitant]
     Active Substance: MONTELUKAST SODIUM
  8. MST CONTINUS [Concomitant]
     Active Substance: MORPHINE SULFATE
  9. ORAMORPH [Concomitant]
     Active Substance: MORPHINE SULFATE
  10. BUSCOPAN [Concomitant]
     Active Substance: BUTYLSCOPOLAMINE BROMIDE

REACTIONS (13)
  - Abdominal discomfort [Recovering/Resolving]
  - Chromaturia [Recovering/Resolving]
  - Pyrexia [Recovering/Resolving]
  - Headache [Recovering/Resolving]
  - Pain [Recovering/Resolving]
  - Confusional state [Recovering/Resolving]
  - Paraesthesia [Not Recovered/Not Resolved]
  - Decreased appetite [Recovering/Resolving]
  - Nervousness [Recovering/Resolving]
  - Vomiting [Recovering/Resolving]
  - Diarrhoea [Recovering/Resolving]
  - Dizziness [Recovering/Resolving]
  - Hypoaesthesia [Not Recovered/Not Resolved]
